FAERS Safety Report 5383066-4 (Version None)
Quarter: 2007Q2

REPORT INFORMATION
  Report Type: 
  Country: None (occurrence: None)
  Receive Date: 20070629
  Receipt Date: 20061103
  Transmission Date: 20071010
  Serious: Yes (Hospitalization, Other)
  Sender: FDA-Public Use
  Company Number: US200611001020

PATIENT
  Age: 54 Year
  Sex: Female

DRUGS (3)
  1. HUMALOG [Suspect]
     Indication: DIABETES MELLITUS
  2. HUMULIN U [Suspect]
     Indication: DIABETES MELLITUS
     Dates: end: 20050101
  3. LANTUS [Concomitant]

REACTIONS (14)
  - BLOOD GLUCOSE DECREASED [None]
  - BLOOD GLUCOSE INCREASED [None]
  - CARDIAC DISORDER [None]
  - CORONARY ARTERY OCCLUSION [None]
  - DEHYDRATION [None]
  - DIABETIC COMA [None]
  - DIABETIC KETOACIDOSIS [None]
  - DIZZINESS [None]
  - HYDROCEPHALUS [None]
  - MALAISE [None]
  - MYOCARDIAL INFARCTION [None]
  - NEUROPATHY PERIPHERAL [None]
  - RASH [None]
  - URINARY INCONTINENCE [None]
